FAERS Safety Report 9342892 (Version 1)
Quarter: 2013Q2

REPORT INFORMATION
  Report Type: Spontaneous
  Country: IL (occurrence: IL)
  Receive Date: 20130611
  Receipt Date: 20130611
  Transmission Date: 20140414
  Serious: Yes (Death)
  Sender: FDA-Public Use
  Company Number: IL-GLAXOSMITHKLINE-B0898457A

PATIENT
  Sex: Male

DRUGS (1)
  1. REVOLADE [Suspect]
     Indication: MYELODYSPLASTIC SYNDROME
     Route: 065

REACTIONS (3)
  - Death [Fatal]
  - Acute leukaemia [Unknown]
  - Ill-defined disorder [Unknown]
